FAERS Safety Report 25627782 (Version 1)
Quarter: 2025Q3

REPORT INFORMATION
  Report Type: Spontaneous
  Country: US (occurrence: None)
  Receive Date: 20250731
  Receipt Date: 20250731
  Transmission Date: 20251021
  Serious: Yes (Hospitalization)
  Sender: FDA-CTU
  Company Number: None

PATIENT
  Age: 59 Year
  Sex: Male

DRUGS (5)
  1. CIPRO [Suspect]
     Active Substance: CIPROFLOXACIN HYDROCHLORIDE
  2. DUPIXENT [Suspect]
     Active Substance: DUPILUMAB
  3. AMOXICILLIN [Suspect]
     Active Substance: AMOXICILLIN
  4. VANCOMYCIN [Suspect]
     Active Substance: VANCOMYCIN
  5. LEVAQUIN [Suspect]
     Active Substance: LEVOFLOXACIN

REACTIONS (3)
  - Skin ulcer [None]
  - Streptococcus test positive [None]
  - Pseudomonas test positive [None]
